FAERS Safety Report 22626048 (Version 2)
Quarter: 2023Q2

REPORT INFORMATION
  Report Type: Spontaneous
  Country: FR (occurrence: FR)
  Receive Date: 20230621
  Receipt Date: 20230627
  Transmission Date: 20230721
  Serious: Yes (Death, Other)
  Sender: FDA-Public Use
  Company Number: FR-009507513-2306FRA009103

PATIENT
  Age: 67 Year
  Sex: Male
  Weight: 62 kg

DRUGS (6)
  1. KEYTRUDA [Suspect]
     Active Substance: PEMBROLIZUMAB
     Indication: Head and neck cancer
     Dosage: 200 MILLIGRAM
     Dates: start: 20230119
  2. CARBOPLATIN [Suspect]
     Active Substance: CARBOPLATIN
     Indication: Head and neck cancer
     Dosage: 380
     Dates: start: 20230119, end: 20230525
  3. FENTANYL [Concomitant]
     Active Substance: FENTANYL
     Dosage: DUROGESIC 10
  4. FENTANYL [Concomitant]
     Active Substance: FENTANYL
     Dosage: DUROGESIC 50
  5. ORAMORPH SR SUSTAINED RELEASE [Concomitant]
     Active Substance: MORPHINE SULFATE
     Dosage: ORAMORPH 5
  6. ORAMORPH SR SUSTAINED RELEASE [Concomitant]
     Active Substance: MORPHINE SULFATE
     Dosage: ORAMORPH 30

REACTIONS (5)
  - Pharyngeal haemorrhage [Fatal]
  - Pharyngeal necrosis [Unknown]
  - Therapy partial responder [Unknown]
  - Fistula [Unknown]
  - Hypermetabolism [Unknown]

NARRATIVE: CASE EVENT DATE: 20230611
